FAERS Safety Report 5343389-1 (Version None)
Quarter: 2007Q2

REPORT INFORMATION
  Report Type: 
  Country: None (occurrence: None)
  Receive Date: 20070502
  Receipt Date: 20070302
  Transmission Date: 20071010
  Serious: Yes (Other)
  Sender: FDA-Public Use
  Company Number: 154015USA

PATIENT
  Sex: Male

DRUGS (1)
  1. MELOXICAM [Suspect]
     Indication: ARTHRITIS
     Dosage: (7.5 MG), ORAL
     Route: 048
     Dates: start: 20070302, end: 20070302

REACTIONS (2)
  - DYSARTHRIA [None]
  - SWOLLEN TONGUE [None]
